FAERS Safety Report 8432610-9 (Version None)
Quarter: 2012Q2

REPORT INFORMATION
  Report Type: 
  Country: None (occurrence: None)
  Receive Date: 20120613
  Receipt Date: 20120531
  Transmission Date: 20120825
  Serious: Yes (Other)
  Sender: FDA-Public Use
  Company Number: CO-AMGEN-COLCT2012003854

PATIENT
  Age: 58 Year
  Sex: Male

DRUGS (12)
  1. LEVOTHYROXINE SODIUM [Concomitant]
     Indication: THYROID DISORDER
     Dosage: 50 MG, 1X/DAY
  2. IBUPROFEN [Concomitant]
     Dosage: UNK, AS NEEDED
  3. SULFASALAZINE [Concomitant]
     Dosage: UNK
  4. DOLEX                              /00020001/ [Concomitant]
     Dosage: 500 MG, AS NEEDED
  5. DOLEX                              /00020001/ [Concomitant]
     Indication: PAIN
     Dosage: 500 MG, AS NEEDED
  6. PREDNISOLONE [Concomitant]
     Indication: PAIN
     Dosage: 50 MG, 1X/DAY
  7. CALCIUM [Concomitant]
     Indication: OSTEOPENIA
     Dosage: UNK, PER DAY
  8. ARAVA [Concomitant]
     Indication: MUSCULOSKELETAL STIFFNESS
     Dosage: 20 MG, 1X/DAY
  9. CALCIUM [Concomitant]
     Dosage: UNK, PER DAY
  10. ETANERCEPT [Suspect]
     Indication: RHEUMATOID ARTHRITIS
     Dosage: 50 MG, WEEKLY
     Route: 058
     Dates: start: 20100713
  11. METHOTREXATE [Concomitant]
     Indication: RHEUMATOID ARTHRITIS
     Dosage: 2.5 MG, 4 TABLETS PER WEEK
  12. FOLIC ACID [Concomitant]
     Dosage: 1 TABLET PER DAY

REACTIONS (7)
  - JOINT SWELLING [None]
  - PYREXIA [None]
  - THYROID DISORDER [None]
  - INFLAMMATION [None]
  - MYCOBACTERIUM TUBERCULOSIS COMPLEX TEST POSITIVE [None]
  - INFLUENZA [None]
  - PAIN [None]
